FAERS Safety Report 6131209-7 (Version None)
Quarter: 2009Q1

REPORT INFORMATION
  Report Type: 
  Country: None (occurrence: None)
  Receive Date: 20090325
  Receipt Date: 20090317
  Transmission Date: 20090719
  Serious: Yes (Hospitalization, Other)
  Sender: FDA-Public Use
  Company Number: US-ELI_LILLY_AND_COMPANY-US200903004248

PATIENT
  Age: 36 Year
  Sex: Male

DRUGS (4)
  1. PROZAC [Suspect]
     Dosage: 20 MG, UNKNOWN
     Route: 065
  2. PROZAC [Suspect]
     Dosage: 40 MG, UNKNOWN
     Route: 065
     Dates: start: 20080402
  3. CLORAZEPATE DIPOTASSIUM [Concomitant]
     Dosage: 3.75 MG, 2/D
     Route: 065
     Dates: end: 20080402
  4. REBIF /05983401/ [Concomitant]
     Indication: MULTIPLE SCLEROSIS
     Dosage: 44 UG, 3/W
     Route: 058
     Dates: start: 20080220

REACTIONS (2)
  - CONVULSION [None]
  - MULTIPLE SCLEROSIS [None]
